FAERS Safety Report 8592985-7 (Version None)
Quarter: 2012Q3

REPORT INFORMATION
  Report Type: 
  Country: None (occurrence: None)
  Receive Date: 20120814
  Receipt Date: 20120807
  Transmission Date: 20120928
  Serious: Yes (Hospitalization)
  Sender: FDA-Public Use
  Company Number: US-UCBSA-023155

PATIENT
  Age: 34 Year
  Sex: Female
  Weight: 69.8 kg

DRUGS (12)
  1. PREDNISONE TAB [Concomitant]
     Dates: start: 20040825, end: 20040101
  2. PREDNISONE TAB [Concomitant]
     Dosage: TAPERED OFF
     Dates: start: 20090422, end: 20090902
  3. OXYCODONE/ACETAMINOPHEN [Concomitant]
     Indication: PAIN
     Dosage: 5-325 MG
     Route: 048
     Dates: start: 20101119, end: 20101130
  4. PREDNISONE TAB [Concomitant]
     Dosage: FINISHED TAPER
     Dates: start: 20080702, end: 20080813
  5. AZATHIOPRINE SODIUM [Concomitant]
     Indication: CROHN'S DISEASE
     Dates: start: 20100922, end: 20111109
  6. AZATHIOPRINE SODIUM [Concomitant]
     Dates: start: 20080720, end: 20100729
  7. DILAUDID [Concomitant]
  8. LOMOTIL [Concomitant]
  9. CIMZIA [Suspect]
     Indication: CROHN'S DISEASE
     Route: 058
     Dates: start: 20101020
  10. PREDNISONE TAB [Concomitant]
     Dosage: FINISHED TAPER
     Dates: start: 20080923, end: 20081028
  11. PREDNISONE TAB [Concomitant]
     Indication: CROHN'S DISEASE
     Dates: start: 20100922
  12. PREDNISONE TAB [Concomitant]
     Dosage: FINISHED TAPER
     Dates: start: 20090119, end: 20100210

REACTIONS (2)
  - CLOSTRIDIAL INFECTION [None]
  - CROHN'S DISEASE [None]
